FAERS Safety Report 5678610-3 (Version None)
Quarter: 2008Q1

REPORT INFORMATION
  Report Type: 
  Country: None (occurrence: None)
  Receive Date: 20080325
  Receipt Date: 20080314
  Transmission Date: 20080703
  Serious: Yes (Other)
  Sender: FDA-Public Use
  Company Number: US-ROCHE-452327

PATIENT
  Age: 76 Year
  Sex: Female

DRUGS (3)
  1. BONIVA [Suspect]
     Indication: OSTEOPOROSIS
     Dosage: OTHER INDICATION SCOLIOSIS
     Route: 048
     Dates: start: 20060529, end: 20060729
  2. CALCIUM [Concomitant]
  3. VITAMIN D [Concomitant]

REACTIONS (7)
  - BACK PAIN [None]
  - BONE DISORDER [None]
  - INSOMNIA [None]
  - MICTURITION URGENCY [None]
  - MUSCLE ATROPHY [None]
  - MYALGIA [None]
  - WEIGHT DECREASED [None]
